FAERS Safety Report 8476093-1 (Version None)
Quarter: 2012Q2

REPORT INFORMATION
  Report Type: 
  Country: None (occurrence: None)
  Receive Date: 20120628
  Receipt Date: 20120627
  Transmission Date: 20120825
  Serious: Yes (Other)
  Sender: FDA-Public Use
  Company Number: US-TEVA-268371USA

PATIENT
  Sex: Female

DRUGS (1)
  1. PROPOXYPHENE NAPSYLATE AND ACETAMINOPHEN [Suspect]
     Indication: PAIN
     Dosage: 100/650 MG
     Dates: start: 20050101, end: 20100101

REACTIONS (4)
  - BLINDNESS [None]
  - TRANSIENT ISCHAEMIC ATTACK [None]
  - HEART VALVE REPLACEMENT [None]
  - BLOOD PRESSURE INADEQUATELY CONTROLLED [None]
